FAERS Safety Report 14242615 (Version 1)
Quarter: 2017Q4

REPORT INFORMATION
  Report Type: Spontaneous
  Country: US (occurrence: US)
  Receive Date: 20171201
  Receipt Date: 20171201
  Transmission Date: 20180321
  Serious: No
  Sender: FDA-Public Use
  Company Number: US-TEVA-772453USA

PATIENT
  Sex: Female

DRUGS (1)
  1. TAZTIA XT [Suspect]
     Active Substance: DILTIAZEM HYDROCHLORIDE

REACTIONS (5)
  - Chest discomfort [Unknown]
  - Functional gastrointestinal disorder [Unknown]
  - Palpitations [Unknown]
  - Obstructive airways disorder [Unknown]
  - Dyspnoea [Unknown]

NARRATIVE: CASE EVENT DATE: 20170519
